FAERS Safety Report 23178053 (Version 1)
Quarter: 2023Q4

REPORT INFORMATION
  Report Type: Spontaneous
  Country: US (occurrence: US)
  Receive Date: 20231113
  Receipt Date: 20231113
  Transmission Date: 20240110
  Serious: Yes (Other)
  Sender: FDA-Public Use
  Company Number: US-NALPROPION PHARMACEUTICALS INC.-US-2023CUR004635

PATIENT
  Age: 55 Year
  Sex: Female

DRUGS (1)
  1. CONTRAVE [Suspect]
     Active Substance: BUPROPION HYDROCHLORIDE\NALTREXONE HYDROCHLORIDE
     Indication: Obesity
     Dosage: STRENGTH: 8/90 MG, UNKNOWN DOSE AND FREQUENCY
     Route: 065

REACTIONS (6)
  - Tachypnoea [Unknown]
  - Procedural pain [Recovered/Resolved]
  - Hypertension [Unknown]
  - Labelled drug-drug interaction issue [Unknown]
  - Inadequate analgesia [Recovered/Resolved]
  - Contraindicated product administered [Unknown]
